FAERS Safety Report 9329643 (Version 2)
Quarter: 2013Q4

REPORT INFORMATION
  Report Type: Spontaneous
  Country: US (occurrence: US)
  Receive Date: 20130604
  Receipt Date: 20131115
  Transmission Date: 20140711
  Serious: Yes (Hospitalization)
  Sender: FDA-Public Use
  Company Number: US-B.I. PHARMACEUTICALS,INC./RIDGEFIELD-2013-BI-15593BP

PATIENT
  Age: 86 Year
  Sex: Male
  Weight: 87.09 kg

DRUGS (6)
  1. PRADAXA [Suspect]
     Indication: ANTICOAGULANT THERAPY
     Dosage: 300 MG
     Route: 048
     Dates: start: 20111101, end: 20120104
  2. PRADAXA [Suspect]
     Indication: ATRIAL FIBRILLATION
  3. TYLENOL [Concomitant]
     Indication: PAIN
     Route: 048
  4. TYLENOL [Concomitant]
     Indication: PYREXIA
  5. LASIX [Concomitant]
     Dosage: 20 MG
     Route: 048
     Dates: start: 201201
  6. PROTONIX [Concomitant]
     Dosage: 40 MG
     Route: 048

REACTIONS (5)
  - Gastrointestinal haemorrhage [Unknown]
  - Diverticulum intestinal haemorrhagic [Unknown]
  - Anaemia [Unknown]
  - Coagulopathy [Unknown]
  - Diverticulum [Unknown]
